FAERS Safety Report 10742837 (Version 1)
Quarter: 2015Q1

REPORT INFORMATION
  Report Type: Report from Study
  Country: US (occurrence: US)
  Receive Date: 20150127
  Receipt Date: 20150127
  Transmission Date: 20150721
  Serious: No
  Sender: FDA-Public Use
  Company Number: US-AMGEN INC.-2014-2180

PATIENT
  Age: 60 Year
  Sex: Female

DRUGS (2)
  1. KYPROLIS [Suspect]
     Active Substance: CARFILZOMIB
     Indication: PRODUCT USED FOR UNKNOWN INDICATION
     Dates: start: 2013
  2. KYPROLIS [Suspect]
     Active Substance: CARFILZOMIB
     Dates: start: 201407

REACTIONS (8)
  - Chills [Unknown]
  - Pyrexia [Unknown]
  - Fall [Recovered/Resolved]
  - Femur fracture [Unknown]
  - Insomnia [Unknown]
  - Vomiting [Unknown]
  - Drug ineffective [Unknown]
  - Neuropathy peripheral [Unknown]

NARRATIVE: CASE EVENT DATE: 2013
